FAERS Safety Report 10224865 (Version 1)
Quarter: 2014Q2

REPORT INFORMATION
  Report Type: Spontaneous
  Country: PT (occurrence: PT)
  Receive Date: 20140609
  Receipt Date: 20140609
  Transmission Date: 20141212
  Serious: Yes (Other)
  Sender: FDA-Public Use
  Company Number: PT-GLAXOSMITHKLINE-B0991711A

PATIENT
  Age: 74 Year
  Sex: Male
  Weight: 80 kg

DRUGS (6)
  1. COMBODART [Suspect]
     Indication: PRODUCT USED FOR UNKNOWN INDICATION
     Dosage: 1TAB PER DAY
     Route: 048
     Dates: start: 20140412, end: 20140420
  2. BRONCHODILATORS [Concomitant]
     Indication: RESPIRATORY DISORDER
  3. ZYLORIC [Concomitant]
     Dosage: 300MG PER DAY
     Route: 065
     Dates: start: 2011
  4. SPIRIVA [Concomitant]
     Dosage: 20MCG PER DAY
     Route: 055
     Dates: start: 2011
  5. FENOFIBRATE [Concomitant]
     Dosage: 145MG PER DAY
     Dates: start: 2011
  6. BUDESONIDE + FORMOTEROL [Concomitant]
     Route: 055
     Dates: start: 2011

REACTIONS (6)
  - Hypersensitivity [Recovered/Resolved]
  - Rash [Unknown]
  - Skin exfoliation [Unknown]
  - Pruritus [Unknown]
  - Skin exfoliation [Unknown]
  - Erythema [Unknown]
